FAERS Safety Report 11545539 (Version 2)
Quarter: 2015Q4

REPORT INFORMATION
  Report Type: Report from Study
  Country: CA (occurrence: CA)
  Receive Date: 20150924
  Receipt Date: 20151106
  Transmission Date: 20160304
  Serious: Yes (Hospitalization, Other)
  Sender: FDA-Public Use
  Company Number: CA-ABBVIE-15K-028-1467224-00

PATIENT
  Age: 41 Year
  Sex: Female
  Weight: 87.8 kg

DRUGS (1)
  1. HUMIRA [Suspect]
     Active Substance: ADALIMUMAB
     Indication: PSORIASIS
     Route: 058

REACTIONS (5)
  - Myocardial ischaemia [Unknown]
  - Coronary artery occlusion [Unknown]
  - Disease susceptibility [Unknown]
  - Acute coronary syndrome [Unknown]
  - Skin infection [Unknown]

NARRATIVE: CASE EVENT DATE: 20150911
